FAERS Safety Report 5099602-1 (Version None)
Quarter: 2006Q3

REPORT INFORMATION
  Report Type: 
  Country: None (occurrence: None)
  Receive Date: 20060908
  Receipt Date: 20060828
  Transmission Date: 20061208
  Serious: Yes (Hospitalization)
  Sender: FDA-Public Use
  Company Number: TR-BRISTOL-MYERS SQUIBB COMPANY-13490834

PATIENT
  Age: 53 Year
  Sex: Male

DRUGS (1)
  1. TRIAMCINOLONE [Suspect]
     Route: 031

REACTIONS (1)
  - EYE INFECTION SYPHILITIC [None]
